FAERS Safety Report 15707232 (Version 1)
Quarter: 2018Q4

REPORT INFORMATION
  Report Type: Spontaneous
  Country: LB (occurrence: LB)
  Receive Date: 20181210
  Receipt Date: 20181210
  Transmission Date: 20190205
  Serious: Yes (Hospitalization)
  Sender: FDA-Public Use
  Company Number: LB-NOVAST LABORATORIES, LTD-LB-2018NOV000421

PATIENT
  Age: 75 Year
  Sex: Male

DRUGS (3)
  1. AMIODARONE [Suspect]
     Active Substance: AMIODARONE
     Indication: PRODUCT USED FOR UNKNOWN INDICATION
     Dosage: UNK
  2. DABIGATRAN [Suspect]
     Active Substance: DABIGATRAN
     Indication: ATRIAL FIBRILLATION
     Dosage: 150 MG, BID
  3. CARISOPRODOL\ASPIRIN [Suspect]
     Active Substance: ASPIRIN\CARISOPRODOL
     Indication: PRODUCT USED FOR UNKNOWN INDICATION
     Dosage: UNK

REACTIONS (2)
  - Drug interaction [Unknown]
  - Post procedural haemorrhage [Unknown]
